FAERS Safety Report 4926698-7 (Version None)
Quarter: 2006Q1

REPORT INFORMATION
  Report Type: 
  Country: None (occurrence: None)
  Receive Date: 20060228
  Receipt Date: 20050527
  Transmission Date: 20060701
  Serious: No
  Sender: FDA-Public Use
  Company Number: US-GLAXOSMITHKLINE-A0560406A

PATIENT
  Sex: Male

DRUGS (3)
  1. LAMICTAL [Suspect]
     Indication: BIPOLAR DISORDER
     Dosage: 150MG TWICE PER DAY
     Route: 048
  2. LEXAPRO [Concomitant]
  3. WELLBUTRIN [Concomitant]

REACTIONS (3)
  - DEPRESSED MOOD [None]
  - IRRITABILITY [None]
  - MALAISE [None]
